FAERS Safety Report 19872677 (Version 2)
Quarter: 2021Q4

REPORT INFORMATION
  Report Type: Spontaneous
  Country: CA (occurrence: CA)
  Receive Date: 20210923
  Receipt Date: 20211129
  Transmission Date: 20220304
  Serious: Yes (Other)
  Sender: FDA-Public Use
  Company Number: CA-TEVA-2021-CA-1956375

PATIENT
  Age: 40 Year
  Sex: Female

DRUGS (18)
  1. CLARITHROMYCIN [Interacting]
     Active Substance: CLARITHROMYCIN
     Indication: Helicobacter duodenal ulcer
     Dosage: 1000 MILLIGRAM DAILY;
     Route: 065
  2. DILTIAZEM [Interacting]
     Active Substance: DILTIAZEM
     Indication: Hypertension
     Dosage: 120 MILLIGRAM DAILY;
     Route: 065
  3. DILTIAZEM [Interacting]
     Active Substance: DILTIAZEM
     Dosage: 360 MILLIGRAM DAILY;
     Route: 065
  4. FLUCONAZOLE [Interacting]
     Active Substance: FLUCONAZOLE
     Indication: Oesophageal candidiasis
     Dosage: 100 MILLIGRAM DAILY;
     Route: 065
  5. PYRAZINAMIDE [Interacting]
     Active Substance: PYRAZINAMIDE
     Indication: Tuberculosis
     Dosage: 1000 MILLIGRAM DAILY;
     Route: 065
  6. RIFAMPIN [Interacting]
     Active Substance: RIFAMPIN
     Indication: Tuberculosis
     Dosage: 600 MILLIGRAM DAILY;
     Route: 065
  7. TACROLIMUS [Interacting]
     Active Substance: TACROLIMUS
     Indication: Renal transplant
     Dosage: 12 MILLIGRAM DAILY;
     Route: 065
  8. TACROLIMUS [Interacting]
     Active Substance: TACROLIMUS
     Dosage: 32 MILLIGRAM DAILY;
     Route: 065
  9. TACROLIMUS [Interacting]
     Active Substance: TACROLIMUS
     Dosage: 6 MILLIGRAM DAILY;
     Route: 065
  10. TACROLIMUS [Interacting]
     Active Substance: TACROLIMUS
     Dosage: 8 MILLIGRAM DAILY;
     Route: 065
  11. THYMOGLOBULIN [Suspect]
     Active Substance: LAPINE T-LYMPHOCYTE IMMUNE GLOBULIN
     Dosage: 100 MILLIGRAM DAILY;
     Route: 065
  12. CEPHALEXIN [Concomitant]
     Active Substance: CEPHALEXIN
     Indication: Product used for unknown indication
     Route: 065
  13. FERROUS GLUCONATE [Concomitant]
     Active Substance: FERROUS GLUCONATE
     Indication: Product used for unknown indication
     Route: 065
  14. MYCOPHENOLATE MOFETIL [Concomitant]
     Active Substance: MYCOPHENOLATE MOFETIL
     Indication: Renal transplant
     Dosage: 2 GRAM DAILY;
     Route: 065
  15. PREDNISONE [Concomitant]
     Active Substance: PREDNISONE
     Indication: Renal transplant
     Dosage: 70 MILLIGRAM DAILY;
     Route: 065
  16. RANITIDINE [Concomitant]
     Active Substance: RANITIDINE
     Indication: Product used for unknown indication
     Route: 065
  17. SULFAMETHOXAZOLE\TRIMETHOPRIM [Concomitant]
     Active Substance: SULFAMETHOXAZOLE\TRIMETHOPRIM
     Indication: Product used for unknown indication
     Route: 065
  18. METHYLPREDNISOLONE [Concomitant]
     Active Substance: METHYLPREDNISOLONE
     Dosage: 140 MILLIGRAM DAILY;
     Route: 065

REACTIONS (7)
  - Helicobacter duodenal ulcer [Recovered/Resolved]
  - Immunosuppressant drug level decreased [Recovered/Resolved]
  - Oesophageal candidiasis [Recovered/Resolved]
  - Drug interaction [Recovered/Resolved]
  - Drug interaction [Recovered/Resolved]
  - Drug interaction [Recovered/Resolved]
  - Drug interaction [Recovered/Resolved]
